FAERS Safety Report 9298641 (Version 1)
Quarter: 2013Q2

REPORT INFORMATION
  Report Type: Spontaneous
  Country: IN (occurrence: IN)
  Receive Date: 20130520
  Receipt Date: 20130520
  Transmission Date: 20140414
  Serious: Yes (Disabling)
  Sender: FDA-Public Use
  Company Number: IN-ASTRAZENECA-2013SE33362

PATIENT
  Age: 70 Year
  Sex: Female
  Weight: 65 kg

DRUGS (7)
  1. BRILINTA [Suspect]
     Indication: ACUTE CORONARY SYNDROME
     Route: 048
     Dates: start: 20130429, end: 20130430
  2. ECOSPRIN [Concomitant]
     Route: 048
  3. STATIN [Concomitant]
     Route: 048
  4. NICODE [Concomitant]
     Route: 048
  5. CERVIDOL [Concomitant]
     Route: 048
  6. PAN-D [Concomitant]
     Route: 048
  7. DULCOLAX [Concomitant]
     Route: 048

REACTIONS (4)
  - Hyperhidrosis [Recovered/Resolved]
  - Insomnia [Recovered/Resolved]
  - Dizziness [Recovered/Resolved]
  - Adverse event [Unknown]
